FAERS Safety Report 19702564 (Version 1)
Quarter: 2021Q3

REPORT INFORMATION
  Report Type: Report from Study
  Country: CA (occurrence: CA)
  Receive Date: 20210815
  Receipt Date: 20210815
  Transmission Date: 20211014
  Serious: Yes (Hospitalization, Other)
  Sender: FDA-Public Use
  Company Number: CA-BEH-2021134740

PATIENT
  Age: 70 Year
  Sex: Female

DRUGS (2)
  1. HIZENTRA [Suspect]
     Active Substance: HUMAN IMMUNOGLOBULIN G
     Indication: PRIMARY IMMUNODEFICIENCY SYNDROME
     Dosage: 10 GRAM (80 ML)
     Route: 065
     Dates: start: 20121127
  2. HIZENTRA [Suspect]
     Active Substance: HUMAN IMMUNOGLOBULIN G
     Dosage: 10 GRAM (80 ML)
     Route: 065
     Dates: start: 20210429

REACTIONS (5)
  - Muscle spasms [Unknown]
  - Pain [Unknown]
  - Gait inability [Unknown]
  - Adverse drug reaction [Unknown]
  - Inflammation [Unknown]

NARRATIVE: CASE EVENT DATE: 2021
